FAERS Safety Report 4393817-3 (Version None)
Quarter: 2004Q3

REPORT INFORMATION
  Report Type: 
  Country: None (occurrence: None)
  Receive Date: 20040706
  Receipt Date: 20040622
  Transmission Date: 20050211
  Serious: Yes (Life-Threatening, Hospitalization)
  Sender: FDA-Public Use
  Company Number: 104615ISR

PATIENT
  Age: 76 Year
  Sex: Female

DRUGS (1)
  1. VINCRISTINE SULFATE [Suspect]
     Indication: SMALL CELL LUNG CANCER STAGE UNSPECIFIED
     Dosage: 2 MILLIGRAM
     Route: 042
     Dates: start: 20040529, end: 20040529

REACTIONS (2)
  - COMA [None]
  - HYPONATRAEMIA [None]
